FAERS Safety Report 8600140-7 (Version None)
Quarter: 2012Q3

REPORT INFORMATION
  Report Type: 
  Country: None (occurrence: None)
  Receive Date: 20120817
  Receipt Date: 20120808
  Transmission Date: 20120928
  Serious: Yes (Other)
  Sender: FDA-Public Use
  Company Number: PT-AMGEN-PRTSP2012045646

PATIENT
  Age: 69 Year
  Sex: Female

DRUGS (4)
  1. PREDNISOLONE [Concomitant]
     Dosage: 10 MG, DAILY
  2. NAPROXEN [Concomitant]
     Dosage: 1 G, DAILY
  3. METHOTREXATE [Concomitant]
     Dosage: 20 MG, WEEKLY
  4. ENBREL [Suspect]
     Indication: RHEUMATOID ARTHRITIS
     Dosage: 50 MG, WEEKLY
     Route: 058
     Dates: start: 20120507

REACTIONS (2)
  - PRODUCT QUALITY ISSUE [None]
  - PERIORBITAL OEDEMA [None]
